FAERS Safety Report 6294650-8 (Version None)
Quarter: 2009Q3

REPORT INFORMATION
  Report Type: 
  Country: None (occurrence: None)
  Receive Date: 20090731
  Receipt Date: 20090731
  Transmission Date: 20100115
  Serious: No
  Sender: FDA-Public Use
  Company Number: None

PATIENT
  Sex: Female
  Weight: 54.4316 kg

DRUGS (1)
  1. ZICAM NASAL GEL ZICAM LLC-MATRIXX INITIAVES, INC [Suspect]
     Indication: NASAL CONGESTION
     Dosage: 2-3 TIMES
     Dates: start: 20080620, end: 20080630

REACTIONS (2)
  - ANOSMIA [None]
  - SINUSITIS [None]
